FAERS Safety Report 12319336 (Version 1)
Quarter: 2016Q2

REPORT INFORMATION
  Report Type: Spontaneous
  Country: LT (occurrence: LT)
  Receive Date: 20160429
  Receipt Date: 20160429
  Transmission Date: 20160815
  Serious: Yes (Other)
  Sender: FDA-Public Use
  Company Number: LT-TEVA-655026ISR

PATIENT
  Age: 49 Year
  Sex: Female

DRUGS (4)
  1. CISPLATIN. [Suspect]
     Active Substance: CISPLATIN
     Indication: METASTASES TO LIVER
     Dosage: 4 COURSES OF 100 MG/M2 DAY 1
     Route: 013
  2. DOXORUBICIN [Suspect]
     Active Substance: DOXORUBICIN
     Indication: METASTASES TO LIVER
     Dosage: 4 COURSES OF 40 MG/M2 DAY 1
     Route: 013
  3. INTERFERON ALFA NOS [Suspect]
     Active Substance: INTERFERON ALFA-2A OR INTERFERON ALFA-2B
     Indication: METASTASES TO LIVER
     Dosage: 4 COURSES OF 4 MU/M2 DAYS 1-3 WITH A 40-50 DAYS INTERVAL
     Route: 013
  4. FLUOROURACIL. [Suspect]
     Active Substance: FLUOROURACIL
     Indication: METASTASES TO LIVER
     Dosage: 4 COURSES OF 500 MG/M2 DAY 1-3
     Route: 013

REACTIONS (5)
  - Transaminases increased [Unknown]
  - Vomiting [Unknown]
  - Pyrexia [Unknown]
  - Thrombocytopenia [Unknown]
  - Nausea [Unknown]
